FAERS Safety Report 4772596-1 (Version None)
Quarter: 2005Q3

REPORT INFORMATION
  Report Type: 
  Country: None (occurrence: None)
  Receive Date: 20050916
  Receipt Date: 20050916
  Transmission Date: 20060218
  Serious: Yes (Other)
  Sender: FDA-Public Use
  Company Number: None

PATIENT
  Age: 56 Year
  Sex: Male
  Weight: 129.2752 kg

DRUGS (1)
  1. LEVAQUIN [Suspect]
     Dosage: 1 PILL TAKEN

REACTIONS (10)
  - CHEST DISCOMFORT [None]
  - COUGH [None]
  - DYSPNOEA [None]
  - HAEMOPTYSIS [None]
  - JAW DISORDER [None]
  - LUNG DISORDER [None]
  - OCULAR HYPERAEMIA [None]
  - PHARYNGEAL OEDEMA [None]
  - SWELLING [None]
  - VOMITING [None]
